FAERS Safety Report 14619352 (Version 1)
Quarter: 2018Q1

REPORT INFORMATION
  Report Type: Report from Study
  Country: US (occurrence: US)
  Receive Date: 20180309
  Receipt Date: 20180309
  Transmission Date: 20180509
  Serious: Yes (Hospitalization, Other)
  Sender: FDA-Public Use
  Company Number: US-GILEAD-2018-0325187

PATIENT
  Age: 70 Year
  Sex: Female

DRUGS (1)
  1. RANOLAZINE. [Suspect]
     Active Substance: RANOLAZINE
     Indication: ANGINA PECTORIS
     Dosage: 500 MG, UNK
     Route: 048

REACTIONS (5)
  - Coronary arterial stent insertion [Unknown]
  - Cerebrovascular accident [Unknown]
  - Peripheral artery bypass [Unknown]
  - Coronary artery bypass [Unknown]
  - Arterial repair [Unknown]
